FAERS Safety Report 8028113-6 (Version None)
Quarter: 2012Q1

REPORT INFORMATION
  Report Type: 
  Country: None (occurrence: None)
  Receive Date: 20120104
  Receipt Date: 20111223
  Transmission Date: 20120608
  Serious: Yes (Hospitalization, Disabling, Other)
  Sender: FDA-Public Use
  Company Number: TPA2011A08390

PATIENT
  Age: 63 Year
  Sex: Female
  Weight: 61.916 kg

DRUGS (2)
  1. JUANUMET (METFORMIN HYDROCHLORIDE, SITAGLIPTIN PHOSPHATE) [Concomitant]
  2. ACTOS [Suspect]
     Indication: TYPE 2 DIABETES MELLITUS
     Dosage: 45 MG, 1 IN 1 D, PER ORAL
     Route: 048
     Dates: start: 20090520, end: 20111122

REACTIONS (1)
  - BLADDER CANCER [None]
